FAERS Safety Report 6062655-8 (Version None)
Quarter: 2009Q1

REPORT INFORMATION
  Report Type: 
  Country: None (occurrence: None)
  Receive Date: 20090203
  Receipt Date: 20090122
  Transmission Date: 20090719
  Serious: Yes (Hospitalization, Congenital Anomaly, Other)
  Sender: FDA-Public Use
  Company Number: US-PFIZER INC-2008049844

PATIENT
  Sex: Female

DRUGS (1)
  1. ZOLOFT [Suspect]
     Route: 064
     Dates: start: 19990729

REACTIONS (32)
  - ATELECTASIS [None]
  - ATRIAL SEPTAL DEFECT [None]
  - BLOOD CULTURE POSITIVE [None]
  - BUNDLE BRANCH BLOCK RIGHT [None]
  - CARDIOMEGALY [None]
  - CYANOSIS [None]
  - DEVICE INEFFECTIVE [None]
  - DRUG EXPOSURE DURING PREGNANCY [None]
  - GASTROENTERITIS [None]
  - HEART DISEASE CONGENITAL [None]
  - HYPERKALAEMIA [None]
  - HYPERTENSION [None]
  - HYPOKALAEMIA [None]
  - MATERNAL DRUGS AFFECTING FOETUS [None]
  - MEAN CELL HAEMOGLOBIN CONCENTRATION INCREASED [None]
  - PATENT DUCTUS ARTERIOSUS [None]
  - PLEURAL EFFUSION [None]
  - POST PROCEDURAL COMPLICATION [None]
  - PULMONARY VALVE STENOSIS [None]
  - PULMONARY VALVE STENOSIS CONGENITAL [None]
  - RED CELL DISTRIBUTION WIDTH INCREASED [None]
  - RESPIRATORY FAILURE [None]
  - RIGHT VENTRICULAR HYPERTROPHY [None]
  - SINUS TACHYCARDIA [None]
  - STAPHYLOCOCCAL INFECTION [None]
  - STAPHYLOCOCCAL MEDIASTINITIS [None]
  - TRICUSPID VALVE INCOMPETENCE [None]
  - VENTRICULAR HYPERKINESIA [None]
  - VENTRICULAR SEPTAL DEFECT [None]
  - WHITE BLOOD CELL COUNT DECREASED [None]
  - WOUND INFECTION [None]
  - WOUND INFECTION STAPHYLOCOCCAL [None]
